FAERS Safety Report 4376390-5 (Version None)
Quarter: 2004Q2

REPORT INFORMATION
  Report Type: 
  Country: None (occurrence: None)
  Receive Date: 20040610
  Receipt Date: 20040610
  Transmission Date: 20050107
  Serious: Yes (Other)
  Sender: FDA-Public Use
  Company Number: None

PATIENT
  Age: 38 Year
  Sex: Female

DRUGS (1)
  1. VIGAMOX [Suspect]

REACTIONS (5)
  - CHILLS [None]
  - EYE PAIN [None]
  - EYE SWELLING [None]
  - HEADACHE [None]
  - NAUSEA [None]
